FAERS Safety Report 24374610 (Version 1)
Quarter: 2024Q3

REPORT INFORMATION
  Report Type: Spontaneous
  Country: US (occurrence: US)
  Receive Date: 20240927
  Receipt Date: 20240927
  Transmission Date: 20241017
  Serious: No
  Sender: SANOFI AVENTIS
  Company Number: US-SA-2024SA276471

PATIENT
  Age: 64 Year
  Sex: Female

DRUGS (23)
  1. DUPIXENT [Suspect]
     Active Substance: DUPILUMAB
     Indication: Asthma
     Dosage: 300 MG, QOW
     Route: 058
     Dates: start: 20240618
  2. ADRENAL [Concomitant]
     Active Substance: EPINEPHRINE
  3. ATENOLOL [Concomitant]
     Active Substance: ATENOLOL
  4. BETAMETHASONE DIPROPIONATE [Concomitant]
     Active Substance: BETAMETHASONE DIPROPIONATE
  5. BREO ELLIPTA [Concomitant]
     Active Substance: FLUTICASONE FUROATE\VILANTEROL TRIFENATATE
  6. CLARITIN [Concomitant]
     Active Substance: LORATADINE
  7. CLINDAMYCIN [Concomitant]
     Active Substance: CLINDAMYCIN
  8. CLOBETASOL [Concomitant]
     Active Substance: CLOBETASOL
  9. ERYTHROMYCIN [Concomitant]
     Active Substance: ERYTHROMYCIN
  10. EUTHYROX [Concomitant]
     Active Substance: LEVOTHYROXINE SODIUM
  11. MONTELUKAST [Concomitant]
     Active Substance: MONTELUKAST SODIUM
  12. NASONEX [Concomitant]
     Active Substance: MOMETASONE FUROATE
     Dosage: NASONEX SPR 50MCG/AC
  13. PREDNISONE [Concomitant]
     Active Substance: PREDNISONE
  14. SINGULAIR [Concomitant]
     Active Substance: MONTELUKAST SODIUM
  15. SYNTHROID [Concomitant]
     Active Substance: LEVOTHYROXINE SODIUM
  16. THEOPHYLLINE [Concomitant]
     Active Substance: THEOPHYLLINE
  17. TIZANIDINE [Concomitant]
     Active Substance: TIZANIDINE
  18. TRELEGY ELLIPTA [Concomitant]
     Active Substance: FLUTICASONE FUROATE\UMECLIDINIUM BROMIDE\VILANTEROL TRIFENATATE
  19. TRIAMCINOLONE [Concomitant]
     Active Substance: TRIAMCINOLONE
  20. VITAMIN B12 [Concomitant]
     Active Substance: CYANOCOBALAMIN
  21. XOLAIR [Concomitant]
     Active Substance: OMALIZUMAB
  22. ALBUTEROL [Concomitant]
     Active Substance: ALBUTEROL
  23. VITAMINS [Concomitant]
     Active Substance: VITAMINS

REACTIONS (1)
  - Impaired quality of life [Unknown]

NARRATIVE: CASE EVENT DATE: 20240101
